FAERS Safety Report 4449599-X (Version None)
Quarter: 2004Q3

REPORT INFORMATION
  Report Type: 
  Country: None (occurrence: None)
  Receive Date: 20040913
  Receipt Date: 20040824
  Transmission Date: 20050211
  Serious: Yes (Hospitalization)
  Sender: FDA-Public Use
  Company Number: A01200404072

PATIENT
  Age: 75 Year
  Sex: Male

DRUGS (7)
  1. PLAVIX [Suspect]
     Dosage: 75 MG QD ORAL
     Route: 048
     Dates: start: 20030820, end: 20040720
  2. ASCAL (ACETYLSALICYLIC CALCIUM) [Concomitant]
  3. SELOKEEN (METOPROLOL TARTRATE) [Concomitant]
  4. ZOCOR [Concomitant]
  5. PANTOZOL (PANTOPRAZOLE SODIUM) [Concomitant]
  6. BUMETANIDE [Concomitant]
  7. MOVICOLON [Concomitant]

REACTIONS (4)
  - ALLERGIC GRANULOMATOUS ANGIITIS [None]
  - DYSPNOEA [None]
  - POLYNEUROPATHY [None]
  - VASCULITIS [None]
